FAERS Safety Report 20589481 (Version 1)
Quarter: 2022Q1

REPORT INFORMATION
  Report Type: Spontaneous
  Country: US (occurrence: None)
  Receive Date: 20220314
  Receipt Date: 20220314
  Transmission Date: 20220423
  Serious: Yes (Hospitalization)
  Sender: FDA-Public Use
  Company Number: None

PATIENT
  Age: 58 Year
  Sex: Female

DRUGS (1)
  1. HEPARIN [Suspect]
     Active Substance: HEPARIN SODIUM
     Indication: Product used for unknown indication
     Dosage: 2000 UNITS SLIDING SCALE IV
     Route: 042
     Dates: start: 20220116, end: 20220119

REACTIONS (18)
  - Retroperitoneal haematoma [None]
  - Gastric haemorrhage [None]
  - Splenic haemorrhage [None]
  - Splenic rupture [None]
  - Extravasation [None]
  - Packed red blood cell transfusion [None]
  - Platelet transfusion [None]
  - Pain in extremity [None]
  - Arthralgia [None]
  - Hypoaesthesia [None]
  - Thoracic outlet syndrome [None]
  - Fall [None]
  - Head injury [None]
  - Limb injury [None]
  - Continuous haemodiafiltration [None]
  - Blood pressure systolic decreased [None]
  - Haemoglobin decreased [None]
  - Haematocrit decreased [None]

NARRATIVE: CASE EVENT DATE: 20220119
